FAERS Safety Report 17326028 (Version 1)
Quarter: 2020Q1

REPORT INFORMATION
  Report Type: Spontaneous
  Country: CZ (occurrence: CZ)
  Receive Date: 20200127
  Receipt Date: 20200127
  Transmission Date: 20200409
  Serious: Yes (Death, Life-Threatening, Congenital Anomaly, Other)
  Sender: FDA-Public Use
  Company Number: CZ-ASTRAZENECA-2019SF86530

PATIENT
  Sex: Female
  Weight: 2.4 kg

DRUGS (4)
  1. METYLDOPA [Suspect]
     Active Substance: METHYLDOPA
     Indication: GESTATIONAL HYPERTENSION
     Route: 064
  2. METOPROLOL. [Suspect]
     Active Substance: METOPROLOL
     Indication: GESTATIONAL HYPERTENSION
     Route: 064
  3. SERTRALINE [Suspect]
     Active Substance: SERTRALINE HYDROCHLORIDE
     Indication: SCHIZOAFFECTIVE DISORDER
     Route: 064
  4. QUETIAPINE. [Suspect]
     Active Substance: QUETIAPINE
     Indication: SCHIZOAFFECTIVE DISORDER
     Route: 064

REACTIONS (8)
  - Renal aplasia [Unknown]
  - Hypotonia neonatal [Unknown]
  - Low set ears [Unknown]
  - Hypertelorism of orbit [Unknown]
  - Cerebellar hypoplasia [Unknown]
  - Holoprosencephaly [Fatal]
  - Neonatal respiratory failure [Unknown]
  - Anterior displaced anus [Unknown]
